FAERS Safety Report 25105179 (Version 1)
Quarter: 2025Q1

REPORT INFORMATION
  Report Type: Spontaneous
  Country: US (occurrence: None)
  Receive Date: 20250320
  Receipt Date: 20250320
  Transmission Date: 20250408
  Serious: Yes (unspecified)
  Sender: FDA-CTU
  Company Number: None

PATIENT
  Age: 47 Year
  Sex: Male
  Weight: 90 kg

DRUGS (1)
  1. NALTREXONE HYDROCHLORIDE [Suspect]
     Active Substance: NALTREXONE HYDROCHLORIDE
     Indication: Alcoholism
     Dosage: FREQUENCY : DAILY;?
     Route: 048
     Dates: start: 20241218

REACTIONS (8)
  - Abdominal pain [None]
  - Nausea [None]
  - Abdominal distension [None]
  - Vomiting [None]
  - Chest discomfort [None]
  - Viral infection [None]
  - Adverse drug reaction [None]
  - Drug hypersensitivity [None]

NARRATIVE: CASE EVENT DATE: 20241218
